FAERS Safety Report 6555779-X (Version None)
Quarter: 2010Q1

REPORT INFORMATION
  Report Type: 
  Country: None (occurrence: None)
  Receive Date: 20100125
  Receipt Date: 20100113
  Transmission Date: 20100710
  Serious: Yes (Other)
  Sender: FDA-Public Use
  Company Number: VISP-NO-1001S-0017

PATIENT
  Age: 75 Year
  Sex: Male

DRUGS (1)
  1. VISIPAQUE [Suspect]
     Indication: SPONDYLOLISTHESIS
     Dosage: 20 ML, SINGLE DOSE, I.T.
     Route: 038

REACTIONS (4)
  - DEAFNESS [None]
  - HEADACHE [None]
  - INTRACRANIAL HYPOTENSION [None]
  - POST PROCEDURAL COMPLICATION [None]
